FAERS Safety Report 12396601 (Version 1)
Quarter: 2016Q2

REPORT INFORMATION
  Report Type: Spontaneous
  Country: US (occurrence: None)
  Receive Date: 20160523
  Receipt Date: 20160523
  Transmission Date: 20160815
  Serious: No
  Sender: FDA-Public Use
  Company Number: None

PATIENT
  Age: 32 Year
  Sex: Female
  Weight: 71.67 kg

DRUGS (1)
  1. ENTYVIO [Suspect]
     Active Substance: VEDOLIZUMAB
     Indication: COLITIS ULCERATIVE
     Dosage: EVERY 8 WEEKS INTO A VEIN
     Route: 042
     Dates: start: 20151123

REACTIONS (7)
  - Hordeolum [None]
  - Pruritus [None]
  - Hyperhidrosis [None]
  - Weight increased [None]
  - Menstrual disorder [None]
  - Acne [None]
  - Dry skin [None]

NARRATIVE: CASE EVENT DATE: 20160422
